FAERS Safety Report 8985555 (Version 1)
Quarter: 2012Q4

REPORT INFORMATION
  Report Type: 
  Country: US (occurrence: US)
  Receive Date: 20121226
  Receipt Date: 20121226
  Transmission Date: 20130627
  Serious: Yes (Other)
  Sender: FDA-Public Use
  Company Number: US-PFIZER INC-2012322357

PATIENT
  Age: 42 Year
  Sex: Female
  Weight: 56.69 kg

DRUGS (5)
  1. LYRICA [Suspect]
     Indication: REFLEX SYMPATHETIC DYSTROPHY
     Dosage: 50 mg/day
     Route: 048
     Dates: start: 2011
  2. LYRICA [Suspect]
     Indication: CHRONIC PAIN
     Dosage: 75 mg/day
     Route: 048
     Dates: start: 201209, end: 2012
  3. LYRICA [Suspect]
     Dosage: 50mg and 75mg daily alternatively everyday
     Route: 048
     Dates: start: 2012, end: 2012
  4. LYRICA [Suspect]
     Dosage: 50 mg/day
     Route: 048
     Dates: start: 2012
  5. XANAX [Suspect]
     Indication: STRESS
     Dosage: UNK, as needed
     Route: 048

REACTIONS (4)
  - Supraventricular tachycardia [Recovered/Resolved]
  - Inappropriate schedule of drug administration [Unknown]
  - Wrong technique in drug usage process [Unknown]
  - Off label use [Unknown]
